FAERS Safety Report 26170062 (Version 3)
Quarter: 2025Q4

REPORT INFORMATION
  Report Type: Spontaneous
  Country: TN (occurrence: TN)
  Receive Date: 20251217
  Receipt Date: 20251230
  Transmission Date: 20260118
  Serious: Yes (Life-Threatening, Other)
  Sender: PFIZER
  Company Number: TN-PFIZER INC-PV202500146015

PATIENT
  Age: 34 Year
  Sex: Female

DRUGS (2)
  1. PIROXICAM [Suspect]
     Active Substance: PIROXICAM
     Indication: Analgesic intervention supportive therapy
     Dosage: UNK
     Route: 030
  2. PIROXICAM [Suspect]
     Active Substance: PIROXICAM
     Indication: Renal colic

REACTIONS (1)
  - Anaphylactic shock [Recovered/Resolved]
